FAERS Safety Report 11358328 (Version 1)
Quarter: 2015Q3

REPORT INFORMATION
  Report Type: Spontaneous
  Country: US (occurrence: US)
  Receive Date: 20150803
  Receipt Date: 20150803
  Transmission Date: 20151125
  Serious: No
  Sender: FDA-Public Use
  Company Number: US-ELI_LILLY_AND_COMPANY-US200804004214

PATIENT
  Age: 33 Year
  Sex: Male
  Weight: 92.97 kg

DRUGS (2)
  1. STRATTERA [Suspect]
     Active Substance: ATOMOXETINE HYDROCHLORIDE
     Dosage: 40 MG, UNK
     Dates: start: 20080415
  2. STRATTERA [Suspect]
     Active Substance: ATOMOXETINE HYDROCHLORIDE
     Dosage: 120 MG, DAILY (1/D)
     Dates: start: 2008, end: 2008

REACTIONS (5)
  - Initial insomnia [Not Recovered/Not Resolved]
  - Mood altered [Not Recovered/Not Resolved]
  - Rebound effect [Not Recovered/Not Resolved]
  - Negative thoughts [Not Recovered/Not Resolved]
  - Psychomotor hyperactivity [Not Recovered/Not Resolved]

NARRATIVE: CASE EVENT DATE: 200803
